FAERS Safety Report 10094609 (Version 1)
Quarter: 2014Q2

REPORT INFORMATION
  Report Type: Spontaneous
  Country: US (occurrence: US)
  Receive Date: 20140422
  Receipt Date: 20140422
  Transmission Date: 20141212
  Serious: No
  Sender: FDA-Public Use
  Company Number: US-PFIZER INC-2014110375

PATIENT
  Age: 63 Year
  Sex: Male
  Weight: 99.8 kg

DRUGS (2)
  1. CELEBREX [Suspect]
     Indication: ARTHROPATHY
     Dosage: 200 MG, DAILY
     Dates: start: 20140417
  2. CELEBREX [Suspect]
     Indication: ARTHRALGIA

REACTIONS (1)
  - Muscle spasms [Recovered/Resolved]
